FAERS Safety Report 19140145 (Version 1)
Quarter: 2021Q2

REPORT INFORMATION
  Report Type: Spontaneous
  Country: US (occurrence: US)
  Receive Date: 20210415
  Receipt Date: 20210415
  Transmission Date: 20210717
  Serious: No
  Sender: FDA-Public Use
  Company Number: US-GLAXOSMITHKLINE-US2021077765

PATIENT
  Age: 80 Year
  Sex: Female

DRUGS (1)
  1. VENTOLIN HFA [Suspect]
     Active Substance: ALBUTEROL SULFATE
     Indication: ASTHMA
     Dosage: 1 PUFF(S), Z, EVERY 4 HOURS SOMETIMES ONE PUFF AND SOMETIMES TWO PUFFS

REACTIONS (4)
  - Product use complaint [Unknown]
  - Panic reaction [Unknown]
  - Dyspnoea [Unknown]
  - Coronavirus infection [Recovered/Resolved]

NARRATIVE: CASE EVENT DATE: 202012
